FAERS Safety Report 7424611-4 (Version None)
Quarter: 2011Q2

REPORT INFORMATION
  Report Type: 
  Country: None (occurrence: None)
  Receive Date: 20110413
  Receipt Date: 20110330
  Transmission Date: 20111010
  Serious: Yes (Hospitalization)
  Sender: FDA-Public Use
  Company Number: US-1185612

PATIENT
  Sex: Male

DRUGS (1)
  1. TIMOLOL MALEATE [Suspect]
     Dosage: 1 GTT QD OD OPHTHALMIC
     Route: 047

REACTIONS (1)
  - TRANSIENT ISCHAEMIC ATTACK [None]
